FAERS Safety Report 19662891 (Version 1)
Quarter: 2021Q3

REPORT INFORMATION
  Report Type: Spontaneous
  Country: AU (occurrence: AU)
  Receive Date: 20210805
  Receipt Date: 20210805
  Transmission Date: 20211014
  Serious: Yes (Hospitalization)
  Sender: FDA-Public Use
  Company Number: AU-AMERICAN REGENT INC-2021002043

PATIENT
  Age: 17 Year
  Sex: Female

DRUGS (1)
  1. FERINJECT [Suspect]
     Active Substance: FERRIC CARBOXYMALTOSE
     Indication: IRON DEFICIENCY ANAEMIA
     Dosage: UNK
     Route: 042

REACTIONS (5)
  - Bradycardia [Unknown]
  - Hypophosphataemia [Recovered/Resolved]
  - Small intestinal obstruction [Unknown]
  - Fatigue [Unknown]
  - Hypotension [Unknown]
